FAERS Safety Report 22030941 (Version 2)
Quarter: 2023Q1

REPORT INFORMATION
  Report Type: Spontaneous
  Country: PL (occurrence: PL)
  Receive Date: 20230223
  Receipt Date: 20230310
  Transmission Date: 20230418
  Serious: Yes (Other)
  Sender: FDA-Public Use
  Company Number: PL-TEVA-2023-PL-2858548

PATIENT
  Age: 7 Year
  Sex: Female

DRUGS (10)
  1. VINCRISTINE [Suspect]
     Active Substance: VINCRISTINE
     Indication: Primary mediastinal large B-cell lymphoma
     Dosage: ON DAY 1, 2 MG/M2
     Route: 040
  2. METHOTREXATE [Suspect]
     Active Substance: METHOTREXATE
     Indication: Primary mediastinal large B-cell lymphoma
     Dosage: 1 G/M2 IN 500 ML/M2 IN DEXTROSE 5% ON DAY 1
     Route: 041
  3. METHOTREXATE [Suspect]
     Active Substance: METHOTREXATE
     Dosage: 15 MG
     Route: 037
  4. DOXORUBICIN [Suspect]
     Active Substance: DOXORUBICIN
     Indication: Primary mediastinal large B-cell lymphoma
     Dosage: 60 MG/M2 DAILY; ON DAY 1 IN 1-HOUR INFUSION, ONCE A DAY
     Route: 050
  5. RITUXIMAB [Suspect]
     Active Substance: RITUXIMAB
     Indication: Primary mediastinal large B-cell lymphoma
     Dosage: ON DAY 1, 375 MG/M2
     Route: 065
  6. PREDNISONE [Suspect]
     Active Substance: PREDNISONE
     Indication: Primary mediastinal large B-cell lymphoma
     Dosage: 120 MG/M2 DAILY; ON DAYS 1-5, 60MG/M2 TWICE A DAY
     Route: 048
  7. LEUCOVORIN [Suspect]
     Active Substance: LEUCOVORIN
     Indication: Primary mediastinal large B-cell lymphoma
     Dosage: 60 MG/M2 DAILY; EVERY 1 HOUR UNTIL METHOTREXATE LEVEL IS BELOW 0.15 MMOL/L, 15 MG/M2 4 TIMES A DAY
     Route: 048
  8. CYCLOPHOSPHAMIDE [Suspect]
     Active Substance: CYCLOPHOSPHAMIDE
     Indication: Primary mediastinal large B-cell lymphoma
     Dosage: 200 (1ST R-COPADM)/250 (2ND R-COPADM) MG/M2/DOSE EVERY 12 HOURS AS AN INFUSION OVER 15 MIN.
     Route: 050
  9. HYDROCORTISONE [Suspect]
     Active Substance: HYDROCORTISONE
     Indication: Primary mediastinal large B-cell lymphoma
     Dosage: 15 MG
     Route: 037
  10. DEXTROSE [Concomitant]
     Active Substance: DEXTROSE
     Indication: Vehicle solution use
     Dosage: 500ML/M2
     Route: 041

REACTIONS (8)
  - Leukopenia [Unknown]
  - Febrile neutropenia [Unknown]
  - Thrombocytopenia [Unknown]
  - Urinary tract infection [Unknown]
  - Stomatitis [Unknown]
  - Anaemia [Unknown]
  - Hypertension [Unknown]
  - Therapy non-responder [Unknown]
